FAERS Safety Report 7141319-3 (Version None)
Quarter: 2010Q4

REPORT INFORMATION
  Report Type: 
  Country: None (occurrence: None)
  Receive Date: 20101122
  Receipt Date: 20101110
  Transmission Date: 20110411
  Serious: Yes (Hospitalization, Disabling)
  Sender: FDA-Public Use
  Company Number: 002710

PATIENT
  Age: 83 Year
  Sex: Male

DRUGS (7)
  1. MACUGEN [Suspect]
     Indication: CHOROIDAL NEOVASCULARISATION
     Dosage: 0.3MG
     Dates: start: 20090224, end: 20090811
  2. MACUGEN [Suspect]
     Indication: MACULAR DEGENERATION
     Dosage: 0.3MG
     Dates: start: 20090224, end: 20090811
  3. MACUGEN [Suspect]
     Indication: MACULOPATHY
     Dosage: 0.3MG
     Dates: start: 20090224, end: 20090811
  4. AVASTIN [Concomitant]
  5. BENOXIL (OXYBUPROCAINE) [Concomitant]
  6. GATIFLOXACIN [Concomitant]
  7. LEVOFLOXACIN [Concomitant]

REACTIONS (1)
  - ENDOPHTHALMITIS [None]
